FAERS Safety Report 13990829 (Version 1)
Quarter: 2017Q3

REPORT INFORMATION
  Report Type: Spontaneous
  Country: US (occurrence: US)
  Receive Date: 20170920
  Receipt Date: 20170920
  Transmission Date: 20171128
  Serious: No
  Sender: FDA-Public Use
  Company Number: US-RECKITT BENCKISER HEALTHCARE INT LIMITED-RB-81879-2017

PATIENT
  Age: 70 Year
  Sex: Female

DRUGS (1)
  1. MUCINEX [Suspect]
     Active Substance: GUAIFENESIN
     Indication: PRODUCT USED FOR UNKNOWN INDICATION
     Dosage: UNK
     Route: 065
     Dates: start: 20161212

REACTIONS (7)
  - Bronchitis [Recovering/Resolving]
  - Dyspnoea [Unknown]
  - Restlessness [Unknown]
  - Unevaluable event [Unknown]
  - Photopsia [Unknown]
  - Pain [Unknown]
  - Fear [Unknown]

NARRATIVE: CASE EVENT DATE: 20161213
